FAERS Safety Report 4719106-2 (Version None)
Quarter: 2005Q3

REPORT INFORMATION
  Report Type: 
  Country: None (occurrence: None)
  Receive Date: 20050719
  Receipt Date: 20050711
  Transmission Date: 20060218
  Serious: Yes (Other)
  Sender: FDA-Public Use
  Company Number: 062-20785-05070172

PATIENT
  Age: 61 Year
  Sex: Male

DRUGS (3)
  1. THALOMID [Suspect]
     Indication: METASTATIC RENAL CELL CARCINOMA
     Dosage: 200MG PO X2D THEN INCREASE TO 400MG PO QD, QD, ORAL
     Route: 048
  2. INTERLEUKIN-2 (INTERLEUKIN-2) (SOLUTION) [Suspect]
     Indication: METASTATIC RENAL CELL CARCINOMA
     Dosage: 7 MIU/M2 ON DAYS 1-5 DURING WEEKS 1-4, REST DURING WEEKS 5 AND 6., SUBCUTANEOUS
     Route: 058
  3. ACETAMINOPHEN [Suspect]
     Indication: METASTATIC RENAL CELL CARCINOMA
     Dosage: 500-1000 MG, ADMINISTERD W/ IL-2, ORAL
     Route: 048

REACTIONS (12)
  - CAPILLARY LEAK SYNDROME [None]
  - CONFUSIONAL STATE [None]
  - CONSTIPATION [None]
  - DISORIENTATION [None]
  - DRUG TOXICITY [None]
  - DYSPNOEA [None]
  - FATIGUE [None]
  - FLUID RETENTION [None]
  - ILEUS PARALYTIC [None]
  - INFLUENZA LIKE ILLNESS [None]
  - PYREXIA [None]
  - WEIGHT DECREASED [None]
